FAERS Safety Report 22522148 (Version 3)
Quarter: 2023Q4

REPORT INFORMATION
  Report Type: Spontaneous
  Country: AR (occurrence: AR)
  Receive Date: 20230605
  Receipt Date: 20231030
  Transmission Date: 20240109
  Serious: Yes (Other)
  Sender: FDA-Public Use
  Company Number: AR-SA-SAC20230112000778

PATIENT

DRUGS (5)
  1. LARONIDASE [Suspect]
     Active Substance: LARONIDASE
     Indication: Mucopolysaccharidosis I
     Dosage: 14.5 MG, QW
     Dates: end: 202301
  2. LARONIDASE [Suspect]
     Active Substance: LARONIDASE
     Dosage: 14.5 MG, QW
     Route: 042
     Dates: start: 202301, end: 202302
  3. LARONIDASE [Suspect]
     Active Substance: LARONIDASE
     Dosage: 14.5 MG, QW
     Route: 042
     Dates: start: 202303, end: 202305
  4. LARONIDASE [Suspect]
     Active Substance: LARONIDASE
     Dosage: 14.5 MG, QW
     Route: 042
     Dates: start: 2023
  5. LARONIDASE [Suspect]
     Active Substance: LARONIDASE
     Dosage: 17.4 MG, QW

REACTIONS (5)
  - Bronchial obstruction [Unknown]
  - Bronchospasm [Unknown]
  - Secretion discharge [Unknown]
  - Body temperature increased [Recovered/Resolved]
  - Pyrexia [Unknown]

NARRATIVE: CASE EVENT DATE: 20230106
